FAERS Safety Report 7039500-7 (Version None)
Quarter: 2010Q4

REPORT INFORMATION
  Report Type: 
  Country: None (occurrence: None)
  Receive Date: 20101012
  Receipt Date: 20100914
  Transmission Date: 20110411
  Serious: No
  Sender: FDA-Public Use
  Company Number: A0880661A

PATIENT
  Age: 59 Year
  Sex: Male

DRUGS (4)
  1. JALYN [Suspect]
     Dosage: 1CAP AT NIGHT
     Route: 048
     Dates: start: 20100908
  2. VITAMIN D [Concomitant]
  3. MELATONIN [Concomitant]
  4. SAW PALMETTO [Concomitant]

REACTIONS (5)
  - ERYTHEMA [None]
  - INSOMNIA [None]
  - PRURITUS [None]
  - RASH [None]
  - URTICARIA [None]
